FAERS Safety Report 5546581-6 (Version None)
Quarter: 2007Q4

REPORT INFORMATION
  Report Type: 
  Country: None (occurrence: None)
  Receive Date: 20071211
  Receipt Date: 20070212
  Transmission Date: 20080405
  Serious: No
  Sender: FDA-Public Use
  Company Number: US-AMGEN-KDL211040

PATIENT
  Sex: Female

DRUGS (1)
  1. ENBREL [Suspect]
     Indication: RHEUMATOID ARTHRITIS
     Route: 058
     Dates: start: 19990601

REACTIONS (8)
  - CYST [None]
  - DEAFNESS [None]
  - EPISTAXIS [None]
  - INJECTION SITE REACTION [None]
  - SINUS HEADACHE [None]
  - SINUS POLYP [None]
  - SKIN LACERATION [None]
  - TENDON DISORDER [None]
